FAERS Safety Report 12278720 (Version 29)
Quarter: 2019Q2

REPORT INFORMATION
  Report Type: Report from Study
  Country: US (occurrence: US)
  Receive Date: 20160418
  Receipt Date: 20190502
  Transmission Date: 20190711
  Serious: Yes (Hospitalization)
  Sender: FDA-Public Use
  Company Number: US-ACTELION-A-US2016-134634

PATIENT
  Age: 42 Year
  Sex: Male
  Weight: 78.91 kg

DRUGS (7)
  1. ADCIRCA [Concomitant]
     Active Substance: TADALAFIL
  2. REMODULIN [Concomitant]
     Active Substance: TREPROSTINIL
     Dosage: UNK
     Dates: end: 20190408
  3. WARFARIN [Concomitant]
     Active Substance: WARFARIN
  4. TADALAFIL. [Concomitant]
     Active Substance: TADALAFIL
  5. OPSUMIT [Suspect]
     Active Substance: MACITENTAN
     Indication: PULMONARY ARTERIAL HYPERTENSION
     Dosage: 10 MG, QD
     Route: 048
     Dates: start: 20151027
  6. OPSUMIT [Suspect]
     Active Substance: MACITENTAN
     Dosage: 10 MG, QD
     Route: 048
  7. DILTIAZEM. [Concomitant]
     Active Substance: DILTIAZEM

REACTIONS (32)
  - Product dose omission [Unknown]
  - Psychotic disorder [Unknown]
  - Malaise [Unknown]
  - Abdominal pain upper [Unknown]
  - Fatigue [Unknown]
  - Gastric disorder [Unknown]
  - Vomiting [Unknown]
  - Platelet count decreased [Unknown]
  - Heart rate irregular [Unknown]
  - Dyspnoea [Unknown]
  - Bronchitis [Unknown]
  - Transplant evaluation [Unknown]
  - Haemorrhage [Unknown]
  - Dizziness [Unknown]
  - Haemoptysis [Unknown]
  - Abdominal pain [Unknown]
  - Road traffic accident [Unknown]
  - Hepatic encephalopathy [Unknown]
  - Ammonia increased [Unknown]
  - Sepsis [Unknown]
  - Haematemesis [Unknown]
  - Oedema [Unknown]
  - Thrombosis [Unknown]
  - Jugular vein distension [Unknown]
  - Hospitalisation [Unknown]
  - Gastroenteritis viral [Unknown]
  - Syncope [Unknown]
  - Nausea [Unknown]
  - Intra-abdominal fluid collection [Unknown]
  - Heart rate increased [Unknown]
  - Arrhythmia [Unknown]
  - Abdominal discomfort [Unknown]

NARRATIVE: CASE EVENT DATE: 20181213
